FAERS Safety Report 5707657-3 (Version None)
Quarter: 2008Q2

REPORT INFORMATION
  Report Type: 
  Country: None (occurrence: None)
  Receive Date: 20080416
  Receipt Date: 20080404
  Transmission Date: 20081010
  Serious: Yes (Other)
  Sender: FDA-Public Use
  Company Number: CH-PFIZER INC-2008030199

PATIENT
  Sex: Male
  Weight: 106 kg

DRUGS (7)
  1. CHAMPIX [Suspect]
     Indication: SMOKING CESSATION THERAPY
     Route: 048
     Dates: start: 20080228, end: 20080313
  2. ASPIRIN [Concomitant]
     Route: 048
  3. CARVEDILOL [Concomitant]
     Route: 048
  4. COVERSUM COMBI [Concomitant]
     Route: 048
  5. AMARYL [Concomitant]
     Route: 048
  6. GLUCOPHAGE [Concomitant]
     Route: 048
  7. INSULIN BASAL [Concomitant]
     Route: 058

REACTIONS (3)
  - JOINT EFFUSION [None]
  - JOINT SWELLING [None]
  - MUSCLE ATROPHY [None]
